FAERS Safety Report 4925541-X (Version None)
Quarter: 2006Q1

REPORT INFORMATION
  Report Type: 
  Country: None (occurrence: None)
  Receive Date: 20060228
  Receipt Date: 20050315
  Transmission Date: 20060701
  Serious: No
  Sender: FDA-Public Use
  Company Number: US-GLAXOSMITHKLINE-A0549833A

PATIENT
  Age: 63 Year
  Sex: Female

DRUGS (11)
  1. LAMICTAL [Suspect]
     Dosage: 25MG TWICE PER DAY
     Route: 048
     Dates: start: 20050228
  2. PROZAC [Concomitant]
  3. LIPITOR [Concomitant]
  4. LEVOXYL [Concomitant]
  5. CYTOMEL [Concomitant]
  6. KLONOPIN [Concomitant]
  7. ATIVAN [Concomitant]
  8. OMEGA 3 FATTY ACIDS [Concomitant]
  9. ASCORBIC ACID [Concomitant]
  10. VITAMIN D [Concomitant]
  11. TRAZODONE [Concomitant]

REACTIONS (2)
  - ORAL PRURITUS [None]
  - PRURITUS [None]
